FAERS Safety Report 14817202 (Version 1)
Quarter: 2018Q2

REPORT INFORMATION
  Report Type: Spontaneous
  Country: US (occurrence: US)
  Receive Date: 20180426
  Receipt Date: 20180426
  Transmission Date: 20180711
  Serious: No
  Sender: FDA-Public Use
  Company Number: US-ELI_LILLY_AND_COMPANY-US201804000663

PATIENT
  Sex: Female

DRUGS (3)
  1. TRULICITY [Suspect]
     Active Substance: DULAGLUTIDE
     Dosage: 1 DF, UNKNOWN
     Route: 058
  2. TRULICITY [Suspect]
     Active Substance: DULAGLUTIDE
     Indication: PRODUCT USED FOR UNKNOWN INDICATION
     Dosage: 1 DF, UNKNOWN
     Route: 058
  3. TRULICITY [Suspect]
     Active Substance: DULAGLUTIDE
     Dosage: 1 DF, UNKNOWN
     Route: 058

REACTIONS (1)
  - Mental disorder [Unknown]
